FAERS Safety Report 6733438-8 (Version None)
Quarter: 2010Q2

REPORT INFORMATION
  Report Type: 
  Country: None (occurrence: None)
  Receive Date: 20100520
  Receipt Date: 20100511
  Transmission Date: 20101027
  Serious: Yes (Hospitalization)
  Sender: FDA-Public Use
  Company Number: FR-KINGPHARMUSA00001-K201000576

PATIENT
  Age: 80 Year
  Sex: Male

DRUGS (7)
  1. ALTACE [Suspect]
     Dosage: UNK
     Route: 048
     Dates: start: 20100101, end: 20100202
  2. ALTACE [Suspect]
     Dosage: UNK
     Route: 048
     Dates: start: 20100201, end: 20100301
  3. CORDARONE [Suspect]
     Dosage: 200 MG, QD
     Route: 048
     Dates: start: 20091001, end: 20100322
  4. PREVISCAN [Suspect]
     Dosage: UNK
     Route: 048
     Dates: start: 20091001, end: 20100301
  5. CARDENSIEL [Suspect]
     Dosage: UNK
     Route: 048
     Dates: start: 20091001, end: 20100322
  6. ESOMEPRAZOLE [Suspect]
     Dosage: UNK
     Route: 048
     Dates: start: 20090901, end: 20100322
  7. ROSUVASTATIN [Suspect]
     Dosage: UNK
     Route: 048
     Dates: start: 20100101, end: 20100322

REACTIONS (6)
  - ECCHYMOSIS [None]
  - ERYSIPELAS [None]
  - ERYTHEMA [None]
  - FEELING HOT [None]
  - PAIN IN EXTREMITY [None]
  - VASCULAR PURPURA [None]
